FAERS Safety Report 24834105 (Version 2)
Quarter: 2025Q1

REPORT INFORMATION
  Report Type: Report from Study
  Country: ES (occurrence: ES)
  Receive Date: 20250113
  Receipt Date: 20250121
  Transmission Date: 20250408
  Serious: Yes (Death, Life-Threatening)
  Sender: PFIZER
  Company Number: None

PATIENT
  Age: 45 Year
  Sex: Female

DRUGS (8)
  1. ISAVUCONAZONIUM SULFATE [Suspect]
     Active Substance: ISAVUCONAZONIUM SULFATE
     Indication: Fungal infection
     Route: 065
     Dates: start: 20230616
  2. DOXORUBICIN HYDROCHLORIDE [Suspect]
     Active Substance: DOXORUBICIN HYDROCHLORIDE
     Indication: Plasma cell leukaemia
     Route: 042
     Dates: start: 20230531
  3. VANCOMYCIN HYDROCHLORIDE [Suspect]
     Active Substance: VANCOMYCIN HYDROCHLORIDE
     Indication: Enterocolitis
     Route: 042
     Dates: start: 20230608
  4. CYCLOPHOSPHAMIDE [Suspect]
     Active Substance: CYCLOPHOSPHAMIDE
     Indication: Plasma cell leukaemia
     Route: 065
     Dates: start: 20230531
  5. ETOPOSIDE [Suspect]
     Active Substance: ETOPOSIDE
     Indication: Plasma cell leukaemia
     Route: 065
     Dates: start: 20230531
  6. CEFTRIAXONE [Suspect]
     Active Substance: CEFTRIAXONE
     Indication: Urinary tract infection
     Route: 042
     Dates: start: 20230706
  7. MEROPENEM [Suspect]
     Active Substance: MEROPENEM
     Indication: Enterocolitis
     Route: 042
     Dates: start: 20230608
  8. PREDNISONE [Concomitant]
     Active Substance: PREDNISONE
     Dates: start: 20230131

REACTIONS (4)
  - Febrile neutropenia [Fatal]
  - Drug-induced liver injury [Fatal]
  - Toxic skin eruption [Fatal]
  - Off label use [Unknown]

NARRATIVE: CASE EVENT DATE: 20230601
